FAERS Safety Report 25421752 (Version 1)
Quarter: 2025Q2

REPORT INFORMATION
  Report Type: Spontaneous
  Country: IT (occurrence: IT)
  Receive Date: 20250611
  Receipt Date: 20250611
  Transmission Date: 20250716
  Serious: Yes (Hospitalization)
  Sender: ROCHE
  Company Number: None

PATIENT
  Age: 55 Year
  Sex: Male

DRUGS (1)
  1. LUNSUMIO [Suspect]
     Active Substance: MOSUNETUZUMAB-AXGB
     Indication: Follicular lymphoma recurrent
     Route: 058
     Dates: start: 20240516, end: 20240827

REACTIONS (2)
  - Pneumonitis [Recovering/Resolving]
  - Cryptococcosis [Recovering/Resolving]

NARRATIVE: CASE EVENT DATE: 20240901
